FAERS Safety Report 16284031 (Version 1)
Quarter: 2019Q2

REPORT INFORMATION
  Report Type: Spontaneous
  Country: US (occurrence: US)
  Receive Date: 20190507
  Receipt Date: 20190507
  Transmission Date: 20190711
  Serious: Yes (Other)
  Sender: FDA-Public Use
  Company Number: PHHY2019US103223

PATIENT
  Age: 5 Year
  Sex: Female

DRUGS (16)
  1. CYCLOPHOSPHAMIDE. [Suspect]
     Active Substance: CYCLOPHOSPHAMIDE
     Indication: METASTASES TO SPINE
     Route: 065
  2. THIOTEPA. [Suspect]
     Active Substance: THIOTEPA
     Indication: CEREBELLAR TUMOUR
  3. METHOTREXATE. [Suspect]
     Active Substance: METHOTREXATE
     Indication: CEREBELLAR TUMOUR
     Route: 065
  4. ETOPOSIDE. [Suspect]
     Active Substance: ETOPOSIDE
     Indication: METASTASES TO SPINE
     Route: 065
  5. VINCRISTINE [Suspect]
     Active Substance: VINCRISTINE
     Indication: METASTASES TO SPINE
     Route: 065
  6. CISPLATIN. [Suspect]
     Active Substance: CISPLATIN
     Indication: METASTASES TO SPINE
     Route: 065
  7. THIOTEPA. [Suspect]
     Active Substance: THIOTEPA
     Indication: METASTASES TO SPINE
     Route: 065
  8. TANDEM [Suspect]
     Active Substance: FERROUS ASPARTO GLYCINATE\FERROUS FUMARATE
     Indication: METASTASES TO SPINE
     Dosage: 3 DF, CYCLIC
     Route: 065
  9. METHOTREXATE. [Suspect]
     Active Substance: METHOTREXATE
     Indication: METASTASES TO SPINE
  10. CYCLOPHOSPHAMIDE. [Suspect]
     Active Substance: CYCLOPHOSPHAMIDE
     Indication: CEREBELLAR TUMOUR
  11. CARBOPLATIN. [Suspect]
     Active Substance: CARBOPLATIN
     Indication: METASTASES TO SPINE
     Route: 065
  12. VINCRISTINE [Suspect]
     Active Substance: VINCRISTINE
     Indication: CEREBELLAR TUMOUR
  13. ETOPOSIDE. [Suspect]
     Active Substance: ETOPOSIDE
     Indication: CEREBELLAR TUMOUR
  14. CARBOPLATIN. [Suspect]
     Active Substance: CARBOPLATIN
     Indication: CEREBELLAR TUMOUR
  15. CISPLATIN. [Suspect]
     Active Substance: CISPLATIN
     Indication: CEREBELLAR TUMOUR
  16. TANDEM [Suspect]
     Active Substance: FERROUS ASPARTO GLYCINATE\FERROUS FUMARATE
     Indication: CEREBELLAR TUMOUR

REACTIONS (6)
  - Oedema [Unknown]
  - Product use in unapproved indication [Unknown]
  - Legionella infection [Unknown]
  - Blood bilirubin increased [Unknown]
  - Weight increased [Unknown]
  - Venoocclusive liver disease [Unknown]
